FAERS Safety Report 6304703-3 (Version None)
Quarter: 2009Q3

REPORT INFORMATION
  Report Type: 
  Country: None (occurrence: None)
  Receive Date: 20090811
  Receipt Date: 20090804
  Transmission Date: 20100115
  Serious: Yes (Hospitalization)
  Sender: FDA-Public Use
  Company Number: A0781103A

PATIENT
  Age: 64 Year
  Sex: Female

DRUGS (15)
  1. AVANDIA [Suspect]
     Dosage: 4MG TWICE PER DAY
     Route: 048
     Dates: start: 20050401, end: 20050101
  2. AVANDAMET [Suspect]
     Route: 048
     Dates: start: 20031009, end: 20050401
  3. LISINOPRIL [Concomitant]
     Dosage: 10MG PER DAY
  4. GLUCOTROL [Concomitant]
     Dosage: 10MG TWICE PER DAY
  5. GLUCOPHAGE [Concomitant]
  6. ACTOS [Concomitant]
  7. LIPITOR [Concomitant]
  8. DITROPAN [Concomitant]
  9. FLONASE [Concomitant]
  10. SKELAXIN [Concomitant]
  11. AMITRIPTYLINE [Concomitant]
  12. NAPROSYN [Concomitant]
  13. NEXIUM [Concomitant]
  14. POTASSIUM CHLORIDE [Concomitant]
  15. ZOLOFT [Concomitant]

REACTIONS (6)
  - CARDIAC FAILURE CONGESTIVE [None]
  - CHEST PAIN [None]
  - DYSPNOEA [None]
  - OEDEMA [None]
  - TRANSIENT ISCHAEMIC ATTACK [None]
  - WEIGHT INCREASED [None]
